FAERS Safety Report 12521309 (Version 1)
Quarter: 2016Q3

REPORT INFORMATION
  Report Type: Spontaneous
  Country: US (occurrence: US)
  Receive Date: 20160701
  Receipt Date: 20160701
  Transmission Date: 20161109
  Serious: Yes (Death, Hospitalization)
  Sender: FDA-Public Use
  Company Number: US-SUN PHARMACEUTICAL INDUSTRIES LTD-2016US-119416

PATIENT
  Age: 63 Year
  Sex: Male

DRUGS (3)
  1. FLUOXETINE [Suspect]
     Active Substance: FLUOXETINE HYDROCHLORIDE
     Indication: CONVERSION DISORDER
     Dosage: UNK
     Route: 065
  2. LORAZEPAM. [Suspect]
     Active Substance: LORAZEPAM
     Indication: CONVERSION DISORDER
     Dosage: UNK
     Route: 065
  3. LORAZEPAM. [Suspect]
     Active Substance: LORAZEPAM
     Indication: CONVERSION DISORDER
     Dosage: UNK
     Route: 065

REACTIONS (5)
  - Fall [Unknown]
  - Creutzfeldt-Jakob disease [Fatal]
  - Paranoia [Unknown]
  - Visual impairment [Unknown]
  - Catatonia [Unknown]
